FAERS Safety Report 8341540-2 (Version None)
Quarter: 2012Q2

REPORT INFORMATION
  Report Type: 
  Country: None (occurrence: None)
  Receive Date: 20120502
  Receipt Date: 20120418
  Transmission Date: 20120825
  Serious: Yes (Other)
  Sender: FDA-Public Use
  Company Number: IE-008261

PATIENT
  Age: 15 Year
  Sex: Male

DRUGS (1)
  1. SOMATROPIN RDNA [Suspect]
     Indication: PRODUCT USED FOR UNKNOWN INDICATION
     Dosage: (1.1 MG SUBCUTANEOUS)
     Route: 058
     Dates: start: 20120418, end: 20120418

REACTIONS (3)
  - FALL [None]
  - SYNCOPE [None]
  - ASTHENIA [None]
